FAERS Safety Report 7820504-9 (Version None)
Quarter: 2011Q4

REPORT INFORMATION
  Report Type: 
  Country: None (occurrence: None)
  Receive Date: 20111018
  Receipt Date: 20111006
  Transmission Date: 20120403
  Serious: Yes (Other)
  Sender: FDA-Public Use
  Company Number: AU-UCBSA-042965

PATIENT
  Age: 59 Year
  Sex: Male

DRUGS (4)
  1. WARFARIN SODIUM [Suspect]
     Indication: HEART VALVE REPLACEMENT
     Dosage: UNKNOWN DOSAGE
  2. KEPPRA [Suspect]
     Indication: EPILEPSY
     Dosage: UNKNOWN DOSAGE
     Route: 048
  3. LIPITOR [Concomitant]
     Dosage: UNKNOWN DOSAGE
  4. ZESTRIL [Concomitant]
     Dosage: UNKNOWN DOSAGE

REACTIONS (1)
  - INTERNATIONAL NORMALISED RATIO INCREASED [None]
